FAERS Safety Report 6661527-5 (Version None)
Quarter: 2010Q1

REPORT INFORMATION
  Report Type: 
  Country: None (occurrence: None)
  Receive Date: 20100329
  Receipt Date: 20100318
  Transmission Date: 20100710
  Serious: Yes (Hospitalization)
  Sender: FDA-Public Use
  Company Number: 2010EN000102

PATIENT
  Age: 9 Year
  Sex: Male
  Weight: 43.1 kg

DRUGS (5)
  1. ONCASPAR [Suspect]
     Indication: ACUTE LYMPHOCYTIC LEUKAEMIA
     Dosage: 3575 IU; X1; IV; 3300 IU; X1; IV
     Route: 042
     Dates: start: 20091117, end: 20091117
  2. ONCASPAR [Suspect]
     Indication: ACUTE LYMPHOCYTIC LEUKAEMIA
     Dosage: 3575 IU; X1; IV; 3300 IU; X1; IV
     Route: 042
     Dates: start: 20100309, end: 20100309
  3. METHOTREXATE [Suspect]
     Indication: ACUTE LYMPHOCYTIC LEUKAEMIA
     Dosage: 130 MG; XL; IV; 15 MG;X1; INTH
     Route: 042
     Dates: start: 20100308, end: 20100308
  4. METHOTREXATE [Suspect]
     Indication: ACUTE LYMPHOCYTIC LEUKAEMIA
     Dosage: 130 MG; XL; IV; 15 MG;X1; INTH
     Route: 042
     Dates: start: 20100308, end: 20100308
  5. VINCRISTINE [Concomitant]

REACTIONS (13)
  - ANAEMIA [None]
  - DEHYDRATION [None]
  - HAEMATEMESIS [None]
  - HYPERBILIRUBINAEMIA [None]
  - HYPERGLYCAEMIA [None]
  - INFECTION [None]
  - LEUKOPENIA [None]
  - MUCOSAL INFLAMMATION [None]
  - OROPHARYNGEAL PAIN [None]
  - PYREXIA [None]
  - SEPSIS [None]
  - THROMBOCYTOPENIA [None]
  - VOMITING [None]
